FAERS Safety Report 20757080 (Version 1)
Quarter: 2022Q2

REPORT INFORMATION
  Report Type: Spontaneous
  Country: US (occurrence: None)
  Receive Date: 20220427
  Receipt Date: 20220427
  Transmission Date: 20220721
  Serious: Yes (Disabling)
  Sender: FDA-Public Use
  Company Number: None

PATIENT
  Age: 36 Year
  Sex: Female
  Weight: 52.65 kg

DRUGS (2)
  1. LEVOCETIRIZINE [Suspect]
     Active Substance: LEVOCETIRIZINE
     Indication: Multiple allergies
     Dosage: OTHER QUANTITY : 0.5 TABLET(S);?FREQUENCY : AS NEEDED;?
     Route: 048
     Dates: start: 20220327, end: 20220426
  2. FOLATE SODIUM [Concomitant]
     Active Substance: FOLATE SODIUM

REACTIONS (13)
  - Enlarged uvula [None]
  - Cough [None]
  - Sensation of foreign body [None]
  - Pyrexia [None]
  - Chapped lips [None]
  - Muscle spasms [None]
  - Arthralgia [None]
  - Headache [None]
  - Fatigue [None]
  - Asthenia [None]
  - Chills [None]
  - Oropharyngeal pain [None]
  - Eye pain [None]

NARRATIVE: CASE EVENT DATE: 20220327
